FAERS Safety Report 10863669 (Version 1)
Quarter: 2015Q1

REPORT INFORMATION
  Report Type: Spontaneous
  Country: US (occurrence: US)
  Receive Date: 20150223
  Receipt Date: 20150223
  Transmission Date: 20150721
  Serious: Yes (Hospitalization)
  Sender: FDA-Public Use
  Company Number: US-CELGENEUS-USA-2014104317

PATIENT
  Age: 53 Year
  Sex: Male

DRUGS (1)
  1. REVLIMID [Suspect]
     Active Substance: LENALIDOMIDE
     Indication: PLASMA CELL MYELOMA
     Route: 048
     Dates: start: 201405

REACTIONS (5)
  - Transient ischaemic attack [Unknown]
  - Rash [Unknown]
  - Hypoaesthesia [Unknown]
  - Pulmonary embolism [Unknown]
  - Fluid overload [Unknown]

NARRATIVE: CASE EVENT DATE: 201408
